FAERS Safety Report 20018881 (Version 2)
Quarter: 2021Q4

REPORT INFORMATION
  Report Type: Spontaneous
  Country: US (occurrence: US)
  Receive Date: 20211101
  Receipt Date: 20211118
  Transmission Date: 20220303
  Serious: No
  Sender: FDA-Public Use
  Company Number: US-ELI_LILLY_AND_COMPANY-US202110012192

PATIENT
  Sex: Female

DRUGS (3)
  1. TRULICITY [Suspect]
     Active Substance: DULAGLUTIDE
     Indication: Weight decreased
     Dosage: 0.75 MG, UNKNOWN
     Route: 058
  2. LIDOCAINE HYDROCHLORIDE [Suspect]
     Active Substance: LIDOCAINE HYDROCHLORIDE
     Indication: Aphonia
     Dosage: GARGLE THE LIDOCAINE AND SPIT IT OUT (TOPICAL)
     Route: 048
  3. LIDOCAINE HYDROCHLORIDE [Suspect]
     Active Substance: LIDOCAINE HYDROCHLORIDE
     Indication: Rash

REACTIONS (4)
  - Aphonia [Unknown]
  - Rash [Not Recovered/Not Resolved]
  - Cardiac flutter [Unknown]
  - Off label use [Unknown]

NARRATIVE: CASE EVENT DATE: 20211001
